FAERS Safety Report 18866803 (Version 2)
Quarter: 2021Q1

REPORT INFORMATION
  Report Type: Report from Study
  Country: None (occurrence: US)
  Receive Date: 20210208
  Receipt Date: 20210223
  Transmission Date: 20210420
  Serious: Yes (Hospitalization, Other)
  Sender: FDA-Public Use
  Company Number: US-ABBVIE-21K-163-3758771-00

PATIENT
  Age: 63 Year
  Sex: Female
  Weight: 61.29 kg

DRUGS (2)
  1. RINVOQ [Suspect]
     Active Substance: UPADACITINIB
     Indication: RHEUMATOID ARTHRITIS
     Route: 048
     Dates: start: 202008
  2. AMLODIPINE [Concomitant]
     Active Substance: AMLODIPINE BESYLATE
     Indication: HYPERTENSION

REACTIONS (5)
  - Rheumatoid arthritis [Recovering/Resolving]
  - Fall [Recovering/Resolving]
  - Spinal fracture [Recovering/Resolving]
  - Nodule [Recovered/Resolved]
  - Traumatic shock [Recovering/Resolving]

NARRATIVE: CASE EVENT DATE: 202008
